FAERS Safety Report 4453449-5 (Version None)
Quarter: 2004Q3

REPORT INFORMATION
  Report Type: 
  Country: None (occurrence: None)
  Receive Date: 20040920
  Receipt Date: 20040907
  Transmission Date: 20050211
  Serious: Yes (Hospitalization, Other)
  Sender: FDA-Public Use
  Company Number: DE-JNJFOC-20040704248

PATIENT
  Sex: Male
  Weight: 56.7 kg

DRUGS (3)
  1. CONCERTA [Suspect]
     Route: 049
  2. CONCERTA [Suspect]
     Indication: IMPULSIVE BEHAVIOUR
     Route: 049
  3. CONCERTA [Suspect]
     Indication: RESTLESSNESS
     Route: 049

REACTIONS (4)
  - C-REACTIVE PROTEIN INCREASED [None]
  - GRANULOCYTOPENIA [None]
  - LYMPHOPENIA [None]
  - WHITE BLOOD CELL COUNT DECREASED [None]
